FAERS Safety Report 18719250 (Version 1)
Quarter: 2021Q1

REPORT INFORMATION
  Report Type: Spontaneous
  Country: FR (occurrence: FR)
  Receive Date: 20210108
  Receipt Date: 20210108
  Transmission Date: 20210419
  Serious: Yes (Other)
  Sender: FDA-Public Use
  Company Number: FR-BAYER-2021-015960

PATIENT
  Age: 16 Year
  Sex: Female

DRUGS (2)
  1. TIMOFEROL [Concomitant]
     Active Substance: ASCORBIC ACID\FERROUS SULFATE
     Indication: ANAEMIA
  2. QLAIRA [Suspect]
     Active Substance: DIENOGEST\ESTRADIOL VALERATE
     Dosage: UNK
     Route: 048
     Dates: start: 20210101, end: 20210103

REACTIONS (6)
  - Intentional product use issue [None]
  - Hemianaesthesia [None]
  - Fatigue [None]
  - Abdominal pain upper [None]
  - Dyspnoea [None]
  - Angina pectoris [None]

NARRATIVE: CASE EVENT DATE: 20210103
